FAERS Safety Report 19498681 (Version 1)
Quarter: 2021Q3

REPORT INFORMATION
  Report Type: Spontaneous
  Country: US (occurrence: US)
  Receive Date: 20210706
  Receipt Date: 20210706
  Transmission Date: 20211014
  Serious: Yes (Other)
  Sender: FDA-Public Use
  Company Number: US-ALLERGAN-2122710US

PATIENT
  Sex: Female
  Weight: 70.3 kg

DRUGS (3)
  1. RESTASIS [Suspect]
     Active Substance: CYCLOSPORINE
     Dosage: 2 GTT, QD
     Route: 047
     Dates: start: 2011
  2. RESTASIS [Suspect]
     Active Substance: CYCLOSPORINE
     Indication: DRY EYE
     Dosage: 2 GTT, BID
     Route: 047
  3. GLIMEPIRIDE. [Concomitant]
     Active Substance: GLIMEPIRIDE
     Indication: DIABETES MELLITUS
     Dosage: 2 DF

REACTIONS (11)
  - Dry eye [Unknown]
  - Retinal degeneration [Not Recovered/Not Resolved]
  - Impaired driving ability [Unknown]
  - Diabetes mellitus [Not Recovered/Not Resolved]
  - Therapy cessation [Unknown]
  - Visual impairment [Unknown]
  - Visual acuity reduced [Unknown]
  - Cardiac murmur [Not Recovered/Not Resolved]
  - Incorrect dose administered [Unknown]
  - Device dislocation [Unknown]
  - Eye complication associated with device [Not Recovered/Not Resolved]

NARRATIVE: CASE EVENT DATE: 2019
